FAERS Safety Report 17948442 (Version 4)
Quarter: 2020Q4

REPORT INFORMATION
  Report Type: Spontaneous
  Country: FR (occurrence: FR)
  Receive Date: 20200626
  Receipt Date: 20201009
  Transmission Date: 20210113
  Serious: Yes (Hospitalization, Other)
  Sender: FDA-Public Use
  Company Number: NVSC2020FR178492

PATIENT
  Age: 36 Year
  Sex: Male

DRUGS (5)
  1. SPIRAMYCIN [Interacting]
     Active Substance: SPIRAMYCIN
     Dosage: 3 UNIT PER MILLION, TID
     Route: 065
  2. RIFAMPICIN [Suspect]
     Active Substance: RIFAMPIN
     Indication: PNEUMONIA LEGIONELLA
     Dosage: 900 MG, BID
     Route: 065
  3. AZATHIOPRINE. [Suspect]
     Active Substance: AZATHIOPRINE
     Indication: IMMUNOSUPPRESSANT DRUG THERAPY
     Dosage: UNK
     Route: 065
  4. SPIRAMYCIN [Interacting]
     Active Substance: SPIRAMYCIN
     Indication: PNEUMONIA LEGIONELLA
     Dosage: 3 MIU, TID
     Route: 065
  5. RIFAMPICIN [Interacting]
     Active Substance: RIFAMPIN
     Dosage: 900 MG, BID
     Route: 065

REACTIONS (6)
  - Therapeutic response decreased [Not Recovered/Not Resolved]
  - Drug interaction [Not Recovered/Not Resolved]
  - Product use in unapproved indication [Unknown]
  - Pneumonia legionella [Not Recovered/Not Resolved]
  - Drug ineffective [Unknown]
  - Lung abscess [Unknown]
